FAERS Safety Report 5417270-3 (Version None)
Quarter: 2007Q3

REPORT INFORMATION
  Report Type: 
  Country: None (occurrence: None)
  Receive Date: 20070816
  Receipt Date: 20070808
  Transmission Date: 20080115
  Serious: Yes (Disabling)
  Sender: FDA-Public Use
  Company Number: DK-SANOFI-SYNTHELABO-A01200708854

PATIENT
  Sex: Male

DRUGS (8)
  1. ZINC SULFATE [Concomitant]
  2. ASPIRIN [Concomitant]
  3. METFORMIN HYDROCHLORIDE [Concomitant]
  4. RISPERIDONE [Concomitant]
  5. PERINDOPRIL ERBUMINE [Concomitant]
  6. PROCREN [Suspect]
     Route: 058
     Dates: start: 20050310
  7. ELIGARD [Suspect]
     Route: 058
     Dates: start: 20070314, end: 20070314
  8. CARVEDILOL [Concomitant]

REACTIONS (2)
  - ECZEMA [None]
  - PRURITUS [None]
